FAERS Safety Report 15993790 (Version 4)
Quarter: 2020Q1

REPORT INFORMATION
  Report Type: Spontaneous
  Country: US (occurrence: US)
  Receive Date: 20190222
  Receipt Date: 20200122
  Transmission Date: 20200409
  Serious: Yes (Other)
  Sender: FDA-Public Use
  Company Number: US-SA-2018SA107875

PATIENT
  Age: 59 Year
  Sex: Female

DRUGS (11)
  1. MEFENAMIC ACID. [Concomitant]
     Active Substance: MEFENAMIC ACID
     Dosage: UNK UNK,UNK
  2. VITAMIN D3 [Concomitant]
     Active Substance: CHOLECALCIFEROL
     Dosage: UNK UNK, UNK
  3. ADVIL [IBUPROFEN] [Concomitant]
     Active Substance: IBUPROFEN
     Dosage: UNK UNK, UNK
  4. MELATONIN [Concomitant]
     Active Substance: MELATONIN
     Dosage: UNK UNK,UNK
  5. VITAMINS NOS [Concomitant]
     Active Substance: VITAMINS
     Dosage: UNK UNK,UNK
  6. ARMOUR THYROID [Concomitant]
     Active Substance: THYROID, PORCINE
     Dosage: UNK UNK,UNK
  7. FISH OIL [Concomitant]
     Active Substance: FISH OIL
     Dosage: UNK UNK,UNK
  8. AMOXICILLIN. [Concomitant]
     Active Substance: AMOXICILLIN
     Dosage: UNK UNK, UNK
  9. AUBAGIO [Suspect]
     Active Substance: TERIFLUNOMIDE
     Indication: MULTIPLE SCLEROSIS
     Dosage: 14 MG,QD
     Route: 048
     Dates: start: 20180314
  10. ERGOCALCIFEROL. [Concomitant]
     Active Substance: ERGOCALCIFEROL
     Dosage: UNK UNK,UNK
  11. COENZYME Q10 [Concomitant]
     Active Substance: UBIDECARENONE
     Dosage: UNK UNK,UNK

REACTIONS (5)
  - Nasopharyngitis [Recovering/Resolving]
  - Respiratory tract congestion [Unknown]
  - Nasopharyngitis [Unknown]
  - Hypertension [Unknown]
  - Endometrial cancer [Unknown]

NARRATIVE: CASE EVENT DATE: 20180404
